FAERS Safety Report 22077668 (Version 1)
Quarter: 2023Q1

REPORT INFORMATION
  Report Type: Spontaneous
  Country: US (occurrence: US)
  Receive Date: 20230309
  Receipt Date: 20230309
  Transmission Date: 20230417
  Serious: Yes (Other)
  Sender: FDA-Public Use
  Company Number: US-STRIDES ARCOLAB LIMITED-2023SP003467

PATIENT
  Age: 13 Year
  Sex: Female

DRUGS (4)
  1. TACROLIMUS [Interacting]
     Active Substance: TACROLIMUS
     Indication: Colitis ulcerative
     Dosage: UNK, RECEIVED PRIOR TO THE TREATMENT WITH NIRMATRELVIR+RITONAVIR
     Route: 065
  2. TACROLIMUS [Interacting]
     Active Substance: TACROLIMUS
     Dosage: UNK, REINITIATED AFTER 12 HOURS OF THE COMPLETION OF THE NIRMATRELVIR+RITONAVIR THERAPY
     Route: 065
  3. PAXLOVID [Interacting]
     Active Substance: NIRMATRELVIR\RITONAVIR
     Indication: COVID-19
     Dosage: UNK, RECEIVED FOR 5 DAYS
     Route: 065
  4. USTEKINUMAB [Suspect]
     Active Substance: USTEKINUMAB
     Indication: Colitis ulcerative
     Dosage: UNK
     Route: 065

REACTIONS (8)
  - Fatigue [Recovered/Resolved]
  - Myalgia [Recovered/Resolved]
  - Vomiting [Recovered/Resolved]
  - Headache [Recovered/Resolved]
  - Drug level increased [Recovered/Resolved]
  - Drug interaction [Unknown]
  - COVID-19 [Unknown]
  - Off label use [Unknown]
